FAERS Safety Report 16347632 (Version 1)
Quarter: 2019Q2

REPORT INFORMATION
  Report Type: Spontaneous
  Country: US (occurrence: US)
  Receive Date: 20190523
  Receipt Date: 20190523
  Transmission Date: 20190711
  Serious: Yes (Other)
  Sender: FDA-Public Use
  Company Number: US-SUNOVION-2019SUN002097

PATIENT
  Age: 51 Year
  Sex: Female

DRUGS (1)
  1. LATUDA [Suspect]
     Active Substance: LURASIDONE HYDROCHLORIDE
     Dosage: 120 MG EVERY OTHER DAY
     Route: 048

REACTIONS (4)
  - Dissociative identity disorder [Unknown]
  - Anger [Unknown]
  - Off label use [Unknown]
  - Suicidal ideation [Unknown]
